FAERS Safety Report 4295028-9 (Version None)
Quarter: 2004Q1

REPORT INFORMATION
  Report Type: 
  Country: None (occurrence: None)
  Receive Date: 20040211
  Receipt Date: 20040127
  Transmission Date: 20041129
  Serious: No
  Sender: FDA-Public Use
  Company Number: 2004AP00527

PATIENT
  Age: 58 Year
  Sex: Female

DRUGS (6)
  1. IRESSA [Suspect]
     Indication: NON-SMALL CELL LUNG CANCER
     Dosage: 250 MG DAILY PO
     Route: 048
     Dates: start: 20031219, end: 20031221
  2. RADIATION THERAPY [Concomitant]
  3. MYONAL [Concomitant]
  4. ULGUT [Concomitant]
  5. LOXONIN [Concomitant]
  6. AZUNOL [Concomitant]

REACTIONS (5)
  - ACUTE CORONARY SYNDROME [None]
  - CORONARY ARTERY OCCLUSION [None]
  - CORONARY ARTERY THROMBOSIS [None]
  - MYOCARDIAL INFARCTION [None]
  - PULMONARY EMBOLISM [None]
